FAERS Safety Report 12632175 (Version 2)
Quarter: 2016Q3

REPORT INFORMATION
  Report Type: Spontaneous
  Country: US (occurrence: US)
  Receive Date: 20160808
  Receipt Date: 20160808
  Transmission Date: 20161109
  Serious: No
  Sender: FDA-Public Use
  Company Number: US-BEH-2016062075

PATIENT
  Age: 63 Year
  Sex: Female
  Weight: 87 kg

DRUGS (13)
  1. EPIPEN [Concomitant]
     Active Substance: EPINEPHRINE
  2. LIDOCAINE. [Concomitant]
     Active Substance: LIDOCAINE
  3. LEXAPRO [Concomitant]
     Active Substance: ESCITALOPRAM OXALATE
  4. HIZENTRA [Suspect]
     Active Substance: HUMAN IMMUNOGLOBULIN G
     Route: 058
  5. HIZENTRA [Suspect]
     Active Substance: HUMAN IMMUNOGLOBULIN G
     Indication: HYPOGAMMAGLOBULINAEMIA
     Route: 058
  6. COUMADIN [Concomitant]
     Active Substance: WARFARIN SODIUM
  7. HIZENTRA [Suspect]
     Active Substance: HUMAN IMMUNOGLOBULIN G
     Route: 058
     Dates: start: 20130306
  8. MUCINEX [Concomitant]
     Active Substance: GUAIFENESIN
  9. TETRACYCLINE [Concomitant]
     Active Substance: TETRACYCLINE
  10. LIDOCAINE. [Concomitant]
     Active Substance: LIDOCAINE
  11. MIRAPEX [Concomitant]
     Active Substance: PRAMIPEXOLE DIHYDROCHLORIDE
  12. LAMICTAL [Concomitant]
     Active Substance: LAMOTRIGINE
  13. INSULIN [Concomitant]
     Active Substance: INSULIN NOS

REACTIONS (1)
  - Bronchitis [Unknown]

NARRATIVE: CASE EVENT DATE: 20160201
